FAERS Safety Report 23292384 (Version 1)
Quarter: 2023Q4

REPORT INFORMATION
  Report Type: Spontaneous
  Country: US (occurrence: US)
  Receive Date: 20231213
  Receipt Date: 20231213
  Transmission Date: 20240110
  Serious: Yes (Death)
  Sender: FDA-Public Use
  Company Number: US-TG THERAPEUTICS INC.-TGT003148

PATIENT

DRUGS (3)
  1. BRIUMVI [Suspect]
     Active Substance: UBLITUXIMAB-XIIY
     Indication: Multiple sclerosis
     Dosage: 150 MG
     Route: 042
     Dates: start: 20230602, end: 20230602
  2. BRIUMVI [Suspect]
     Active Substance: UBLITUXIMAB-XIIY
     Dosage: 450 MG
     Route: 042
     Dates: start: 20230617, end: 20230617
  3. CLEMASTINE [Concomitant]
     Active Substance: CLEMASTINE
     Indication: Visual acuity reduced
     Dosage: 5.26 MILLIGRAM, BID
     Dates: start: 20230502

REACTIONS (1)
  - Completed suicide [Fatal]

NARRATIVE: CASE EVENT DATE: 20230713
